FAERS Safety Report 19406169 (Version 1)
Quarter: 2021Q2

REPORT INFORMATION
  Report Type: Other
  Country: US (occurrence: US)
  Receive Date: 20210611
  Receipt Date: 20210611
  Transmission Date: 20210717
  Serious: No
  Sender: FDA-Public Use
  Company Number: US-ROCHE-2840220

PATIENT
  Age: 53 Year
  Sex: Female
  Weight: 68.1 kg

DRUGS (11)
  1. BACLOFEN. [Concomitant]
     Active Substance: BACLOFEN
     Indication: MUSCLE SPASTICITY
     Dosage: 10 MG X 2 (20 MG) IN MORNING AND AT NIGHT ;ONGOING: YES
     Route: 048
  2. AMPYRA [Concomitant]
     Active Substance: DALFAMPRIDINE
     Route: 048
     Dates: start: 20191230, end: 20210304
  3. AMPYRA [Concomitant]
     Active Substance: DALFAMPRIDINE
     Route: 048
     Dates: start: 20210318
  4. OCREVUS [Suspect]
     Active Substance: OCRELIZUMAB
     Indication: SECONDARY PROGRESSIVE MULTIPLE SCLEROSIS
     Dosage: DATE OF TREATMENT: 10/FEB/2020
     Route: 042
     Dates: start: 20190812, end: 20200810
  5. KESIMPTA [Concomitant]
     Active Substance: OFATUMUMAB
     Indication: RELAPSING-REMITTING MULTIPLE SCLEROSIS
     Route: 058
     Dates: start: 2021
  6. NALTREXONE [Concomitant]
     Active Substance: NALTREXONE
     Indication: NEUROPATHY PERIPHERAL
     Route: 048
     Dates: start: 20210504
  7. NALTREXONE [Concomitant]
     Active Substance: NALTREXONE
     Indication: PARAESTHESIA
     Route: 048
     Dates: start: 2021
  8. JANSSEN COVID?19 VACCINE [Suspect]
     Active Substance: AD26.COV2.S
     Indication: COVID-19 PROPHYLAXIS
     Route: 065
     Dates: start: 20210331
  9. NALTREXONE [Concomitant]
     Active Substance: NALTREXONE
     Indication: HYPOAESTHESIA
     Route: 048
     Dates: start: 2021
  10. OCREVUS [Suspect]
     Active Substance: OCRELIZUMAB
     Route: 042
     Dates: start: 20180813
  11. CRANBERRY. [Concomitant]
     Active Substance: CRANBERRY
     Indication: URINARY TRACT INFECTION
     Route: 048
     Dates: start: 202008

REACTIONS (6)
  - Herpes zoster [Recovered/Resolved]
  - Central nervous system lesion [Not Recovered/Not Resolved]
  - Migraine [Not Recovered/Not Resolved]
  - Hypokinesia [Not Recovered/Not Resolved]
  - Fall [Unknown]
  - Rash [Unknown]

NARRATIVE: CASE EVENT DATE: 202101
